FAERS Safety Report 9676439 (Version 2)
Quarter: 2013Q4

REPORT INFORMATION
  Report Type: Report from Study
  Country: DE (occurrence: DE)
  Receive Date: 20131107
  Receipt Date: 20131107
  Transmission Date: 20140711
  Serious: Yes (Hospitalization)
  Sender: FDA-Public Use
  Company Number: PHHO2013DE013826

PATIENT
  Sex: 0

DRUGS (10)
  1. PHENPROCOUMON [Suspect]
  2. ACETYLSALICYLIC ACID [Suspect]
  3. BLINDED ENALAPRIL [Suspect]
     Indication: CARDIAC FAILURE CHRONIC
     Dosage: DOUBLE BLIND
     Route: 048
     Dates: start: 20120508, end: 20131021
  4. BLINDED LCZ696 [Suspect]
     Indication: CARDIAC FAILURE CHRONIC
     Dosage: DOUBLE BLIND
     Route: 048
     Dates: start: 20120508, end: 20131021
  5. BLINDED NO TREATMENT RECEIVED [Suspect]
     Indication: CARDIAC FAILURE CHRONIC
     Dosage: DOUBLE BLIND
     Route: 048
     Dates: start: 20120508, end: 20131021
  6. BLINDED ENALAPRIL [Suspect]
     Dosage: DOUBLE BLINDED
     Route: 048
     Dates: start: 20131101
  7. BLINDED LCZ696 [Suspect]
     Dosage: DOUBLE BLINDED
     Route: 048
     Dates: start: 20131101
  8. BLINDED NO TREATMENT RECEIVED [Suspect]
     Dosage: DOUBLE BLINDED
     Route: 048
     Dates: start: 20131101
  9. METOPROLOL [Concomitant]
     Indication: CARDIAC FAILURE CHRONIC
     Dosage: 100 MG, UNK
     Dates: start: 19991014, end: 20131015
  10. METOPROLOL [Concomitant]
     Dosage: 47.5 MG, (1/2-0-1/2)
     Dates: start: 20131016

REACTIONS (1)
  - Anaemia [Recovered/Resolved]
